FAERS Safety Report 24147803 (Version 2)
Quarter: 2024Q3

REPORT INFORMATION
  Report Type: Spontaneous
  Country: BE (occurrence: BE)
  Receive Date: 20240729
  Receipt Date: 20240802
  Transmission Date: 20241017
  Serious: Yes (Death, Other)
  Sender: OTSUKA
  Company Number: None

PATIENT
  Age: 29 Year
  Sex: Male
  Weight: 96 kg

DRUGS (3)
  1. ABILIFY MAINTENA [Suspect]
     Active Substance: ARIPIPRAZOLE
     Indication: Psychotic disorder
     Dosage: 1 DF, QM
     Route: 030
     Dates: start: 20230713, end: 20240306
  2. ABILIFY [Suspect]
     Active Substance: ARIPIPRAZOLE
     Indication: Product used for unknown indication
     Dosage: 10 MG
     Route: 065
  3. SERTRALINE [Concomitant]
     Active Substance: SERTRALINE HYDROCHLORIDE
     Indication: Product used for unknown indication
     Dosage: 50 MG
     Route: 065

REACTIONS (4)
  - Coronary artery occlusion [Fatal]
  - Myocardial infarction [Fatal]
  - Product use in unapproved indication [Unknown]
  - Treatment noncompliance [Unknown]

NARRATIVE: CASE EVENT DATE: 20230713
